FAERS Safety Report 11917865 (Version 1)
Quarter: 2016Q1

REPORT INFORMATION
  Report Type: Other
  Country: US (occurrence: US)
  Receive Date: 20160114
  Receipt Date: 20160114
  Transmission Date: 20160526
  Serious: Yes (Other)
  Sender: FDA-Public Use
  Company Number: US-DEP_02775_2015

PATIENT
  Sex: Female
  Weight: 45 kg

DRUGS (4)
  1. NUCYNTA [Suspect]
     Active Substance: TAPENTADOL HYDROCHLORIDE
     Indication: BREAKTHROUGH PAIN
     Route: 048
     Dates: start: 20150117
  2. NUCYNTA ER [Suspect]
     Active Substance: TAPENTADOL HYDROCHLORIDE
     Indication: NERVE INJURY
     Dosage: [1 AM AND 1 PM]
     Route: 048
     Dates: start: 20150117
  3. NUCYNTA ER [Suspect]
     Active Substance: TAPENTADOL HYDROCHLORIDE
     Indication: OFF LABEL USE
     Dosage: [1 AM AND 1 PM]
     Route: 048
     Dates: start: 20150117
  4. NUCYNTA ER [Suspect]
     Active Substance: TAPENTADOL HYDROCHLORIDE
     Indication: PAIN
     Dosage: [1 AM AND 1 PM]
     Route: 048
     Dates: start: 20150117

REACTIONS (2)
  - Drug dependence [Unknown]
  - Anxiety [Not Recovered/Not Resolved]

NARRATIVE: CASE EVENT DATE: 2015
